FAERS Safety Report 6060264-8 (Version None)
Quarter: 2009Q1

REPORT INFORMATION
  Report Type: 
  Country: None (occurrence: None)
  Receive Date: 20090129
  Receipt Date: 20081203
  Transmission Date: 20090719
  Serious: Yes (Other)
  Sender: FDA-Public Use
  Company Number: 2008GR_BP0764

PATIENT
  Age: 30 Year
  Sex: Female

DRUGS (2)
  1. TERBINAFINE HCL [Suspect]
     Indication: FUNGAL SKIN INFECTION
     Dosage: 250 MG ORAL
     Route: 048
     Dates: start: 20080923
  2. NUVARING(ETONOGESTREL MICRONISED, ETHYNILESTRADIOL MIKRONISED) [Concomitant]

REACTIONS (4)
  - DRUG INTERACTION [None]
  - DYSMENORRHOEA [None]
  - MENSTRUATION IRREGULAR [None]
  - METRORRHAGIA [None]
